FAERS Safety Report 16165575 (Version 2)
Quarter: 2019Q2

REPORT INFORMATION
  Report Type: Spontaneous
  Country: US (occurrence: US)
  Receive Date: 20190405
  Receipt Date: 20190417
  Transmission Date: 20190711
  Serious: Yes (Other)
  Sender: FDA-Public Use
  Company Number: US-MYLANLABS-2019M1030781

PATIENT
  Sex: Female

DRUGS (1)
  1. GLATIRAMER [Suspect]
     Active Substance: GLATIRAMER
     Indication: PRODUCT USED FOR UNKNOWN INDICATION
     Dosage: UNK, 3XW
     Route: 058

REACTIONS (5)
  - Injection site erythema [Unknown]
  - Multiple sclerosis relapse [Unknown]
  - Injection site pain [Unknown]
  - Injection site pruritus [Unknown]
  - Paraesthesia [Unknown]
